FAERS Safety Report 21917240 (Version 1)
Quarter: 2023Q1

REPORT INFORMATION
  Report Type: Spontaneous
  Country: US (occurrence: US)
  Receive Date: 20230126
  Receipt Date: 20230126
  Transmission Date: 20230418
  Serious: No
  Sender: FDA-Public Use
  Company Number: US-009507513-2301USA001795

PATIENT
  Age: 36 Year
  Sex: Female

DRUGS (1)
  1. EMEND [Suspect]
     Active Substance: APREPITANT
     Indication: Impaired gastric emptying
     Dosage: UNK

REACTIONS (2)
  - Product use in unapproved indication [Unknown]
  - Maternal exposure during pregnancy [Unknown]
